FAERS Safety Report 7320649-6 (Version None)
Quarter: 2011Q1

REPORT INFORMATION
  Report Type: 
  Country: None (occurrence: None)
  Receive Date: 20110228
  Receipt Date: 20110215
  Transmission Date: 20110831
  Serious: Yes (Other)
  Sender: FDA-Public Use
  Company Number: US-ROCHE-734013

PATIENT
  Sex: Female
  Weight: 65.8 kg

DRUGS (2)
  1. ACCUTANE [Suspect]
     Indication: ACNE
     Route: 065
     Dates: start: 19980101, end: 19980404
  2. ACCUTANE [Suspect]
     Route: 065
     Dates: start: 20000301, end: 20000401

REACTIONS (6)
  - ARTHRITIS [None]
  - SUICIDAL IDEATION [None]
  - DEPRESSION [None]
  - COLITIS ULCERATIVE [None]
  - INFLAMMATORY BOWEL DISEASE [None]
  - GASTROINTESTINAL INJURY [None]
